FAERS Safety Report 5363697-8 (Version None)
Quarter: 2007Q2

REPORT INFORMATION
  Report Type: 
  Country: None (occurrence: None)
  Receive Date: 20070620
  Receipt Date: 20070612
  Transmission Date: 20071010
  Serious: Yes (Other)
  Sender: FDA-Public Use
  Company Number: US-ROCHE-495594

PATIENT
  Age: 52 Year
  Sex: Female
  Weight: 61.2 kg

DRUGS (1)
  1. XENICAL [Suspect]
     Indication: WEIGHT CONTROL
     Dosage: PATIENT TAKES MEDICATION TWICE A DAY OR AS NEEDED.
     Route: 048
     Dates: start: 20010101

REACTIONS (1)
  - OSTEOPENIA [None]
